FAERS Safety Report 4277746-1 (Version None)
Quarter: 2004Q1

REPORT INFORMATION
  Report Type: 
  Country: None (occurrence: None)
  Receive Date: 20040121
  Receipt Date: 20040107
  Transmission Date: 20041129
  Serious: Yes (Hospitalization)
  Sender: FDA-Public Use
  Company Number: 04P-056-0246540-00

PATIENT
  Age: 66 Year
  Sex: Female

DRUGS (6)
  1. FEROGRAD TABLETS (FERO-GRADUMET FILMTAB) (FERROUS SULFATE) (FERROUS SU [Suspect]
     Dosage: 2 TABLET, 1 IN 1 D, PER ORAL
     Route: 048
  2. PROFENID (KETOPROFEN) (KETOPROFEN) (KETOPROFEN) [Suspect]
     Dosage: TOPICAL
     Route: 061
  3. FUROSEMIDE [Suspect]
     Dosage: 40 MG, 3 IN 1 D, PER ORAL
     Route: 048
     Dates: end: 19961229
  4. CAPTOPRIL [Suspect]
     Dosage: 25 MILLICURIES, 1 IN 1 D, PER ORAL
     Route: 048
     Dates: end: 19961229
  5. CALCIUM CARBONATE [Suspect]
     Dosage: 3.85 GM, 1 IN 1 D , PER ORAL
     Route: 048
  6. ISOPHANE INSULIN [Suspect]
     Dosage: INJECTION

REACTIONS (14)
  - BONE DENSITY DECREASED [None]
  - BUNDLE BRANCH BLOCK LEFT [None]
  - CARDIOMEGALY [None]
  - DRUG INEFFECTIVE [None]
  - DYSPNOEA [None]
  - HAEMODIALYSIS [None]
  - OEDEMA PERIPHERAL [None]
  - ORTHOPNOEA [None]
  - PAIN [None]
  - PULMONARY OEDEMA [None]
  - RENAL FAILURE [None]
  - RENAL TUBULAR NECROSIS [None]
  - TACHYPNOEA [None]
  - VASODILATATION [None]
